FAERS Safety Report 23616254 (Version 5)
Quarter: 2025Q3

REPORT INFORMATION
  Report Type: Spontaneous
  Country: US (occurrence: US)
  Receive Date: 20240311
  Receipt Date: 20250806
  Transmission Date: 20251020
  Serious: Yes (Hospitalization, Disabling, Other)
  Sender: AMGEN
  Company Number: US-HORIZON THERAPEUTICS-HZN-2024-002755

PATIENT
  Age: 51 Year
  Sex: Female

DRUGS (81)
  1. TEPEZZA [Suspect]
     Active Substance: TEPROTUMUMAB-TRBW
     Indication: Graves^ disease
     Route: 042
     Dates: start: 20210218
  2. TEPEZZA [Suspect]
     Active Substance: TEPROTUMUMAB-TRBW
     Indication: Endocrine ophthalmopathy
     Route: 042
     Dates: start: 20210607
  3. TEPEZZA [Suspect]
     Active Substance: TEPROTUMUMAB-TRBW
     Route: 042
     Dates: start: 20210620
  4. TEPEZZA [Suspect]
     Active Substance: TEPROTUMUMAB-TRBW
     Route: 042
     Dates: start: 20210719
  5. TEPEZZA [Suspect]
     Active Substance: TEPROTUMUMAB-TRBW
     Route: 042
     Dates: start: 20210809
  6. TEPEZZA [Suspect]
     Active Substance: TEPROTUMUMAB-TRBW
     Route: 042
     Dates: start: 20210830
  7. TEPEZZA [Suspect]
     Active Substance: TEPROTUMUMAB-TRBW
     Route: 042
     Dates: start: 20210920
  8. TEPEZZA [Suspect]
     Active Substance: TEPROTUMUMAB-TRBW
     Route: 042
     Dates: start: 20211011
  9. PREDNISONE [Suspect]
     Active Substance: PREDNISONE
     Indication: Product used for unknown indication
     Dosage: 40 MILLIGRAM, QD
     Route: 048
  10. PROLIA [Suspect]
     Active Substance: DENOSUMAB
     Indication: Product used for unknown indication
     Route: 058
  11. ZOFRAN [Concomitant]
     Active Substance: ONDANSETRON HYDROCHLORIDE
     Route: 065
  12. MECLIZINE [Concomitant]
     Active Substance: MECLIZINE HYDROCHLORIDE
     Route: 065
  13. VEOZAH [Concomitant]
     Active Substance: FEZOLINETANT
     Dosage: 45 MILLIGRAM, QD
     Route: 048
  14. AMLODIPINE BESYLATE [Concomitant]
     Active Substance: AMLODIPINE BESYLATE
     Route: 048
  15. DICLOFENAC SODIUM [Concomitant]
     Active Substance: DICLOFENAC SODIUM
     Route: 048
  16. CYCLOBENZAPRINE HYDROCHLORIDE [Concomitant]
     Active Substance: CYCLOBENZAPRINE HYDROCHLORIDE
     Route: 048
  17. OXYCODONE AND ACETAMINOPHEN [Concomitant]
     Active Substance: ACETAMINOPHEN\OXYCODONE HYDROCHLORIDE
     Route: 048
  18. PREGABALIN [Concomitant]
     Active Substance: PREGABALIN
     Route: 048
  19. PRAZOSIN HYDROCHLORIDE [Concomitant]
     Active Substance: PRAZOSIN HYDROCHLORIDE
     Route: 048
  20. LAMOTRIGINE [Concomitant]
     Active Substance: LAMOTRIGINE
     Route: 048
  21. MECLIZINE HYDROCHLORIDE [Concomitant]
     Active Substance: MECLIZINE HYDROCHLORIDE
     Route: 048
  22. INCRUSE ELLIPTA [Concomitant]
     Active Substance: UMECLIDINIUM BROMIDE
  23. CARVEDILOL [Concomitant]
     Active Substance: CARVEDILOL
     Route: 048
  24. RESTASIS [Concomitant]
     Active Substance: CYCLOSPORINE
     Route: 047
  25. DULOXETINE [Concomitant]
     Active Substance: DULOXETINE
     Route: 048
  26. OMEPRAZOLE [Concomitant]
     Active Substance: OMEPRAZOLE
     Route: 048
  27. HYDROXYZINE PAMOATE [Concomitant]
     Active Substance: HYDROXYZINE PAMOATE
     Route: 048
  28. LEVALBUTEROL TARTRATE [Concomitant]
     Active Substance: LEVALBUTEROL TARTRATE
  29. ARIPIPRAZOLE [Concomitant]
     Active Substance: ARIPIPRAZOLE
     Route: 048
  30. BREO ELLIPTA [Concomitant]
     Active Substance: FLUTICASONE FUROATE\VILANTEROL TRIFENATATE
  31. XOPENEX HFA [Concomitant]
     Active Substance: LEVALBUTEROL TARTRATE
  32. COREG [Concomitant]
     Active Substance: CARVEDILOL
     Route: 065
  33. OXYGEN [Concomitant]
     Active Substance: OXYGEN
     Route: 045
  34. ESTRADIOL [Concomitant]
     Active Substance: ESTRADIOL
     Dosage: 0.05 MILLIGRAM, QWK (PATCH)
     Route: 062
  35. ESTRADIOL [Concomitant]
     Active Substance: ESTRADIOL
     Dosage: 0.52 MILLIGRAM, QD (0.52 MG/0.87 GM)
     Route: 062
  36. ESTRADIOL [Concomitant]
     Active Substance: ESTRADIOL
     Dosage: 0.75 MILLIGRAM, QD (0.75 MG/0.75GM GEL)
     Route: 061
  37. PROGESTERONE [Concomitant]
     Active Substance: PROGESTERONE
     Dosage: 100 MILLIGRAM, QD (BEDTIME)
     Route: 048
     Dates: end: 20230506
  38. GLIPIZIDE [Concomitant]
     Active Substance: GLIPIZIDE
     Dosage: 10 MILLIGRAM, BID
     Route: 048
  39. GLIPIZIDE [Concomitant]
     Active Substance: GLIPIZIDE
     Dosage: 5 MILLIGRAM, QD
     Route: 048
  40. INSULIN LISPRO [Concomitant]
     Active Substance: INSULIN LISPRO
     Route: 065
  41. DEXTROSE [Concomitant]
     Active Substance: DEXTROSE MONOHYDRATE
     Route: 048
  42. GLUCAGON [Concomitant]
     Active Substance: GLUCAGON
     Route: 030
  43. TOPROL XL [Concomitant]
     Active Substance: METOPROLOL SUCCINATE
     Dosage: 25 MILLIGRAM, QD
     Route: 048
  44. NORVASC [Concomitant]
     Active Substance: AMLODIPINE BESYLATE
     Route: 048
  45. ZITHROMAX [Concomitant]
     Active Substance: AZITHROMYCIN DIHYDRATE
     Route: 048
  46. LAMICTAL [Concomitant]
     Active Substance: LAMOTRIGINE
     Route: 048
  47. MAGNESIUM OXIDE [Concomitant]
     Active Substance: MAGNESIUM OXIDE
     Dosage: 400 MILLIGRAM, BID
     Route: 048
  48. DESYREL [Concomitant]
     Active Substance: TRAZODONE HYDROCHLORIDE
     Route: 048
  49. NICODERM CQ [Concomitant]
     Active Substance: NICOTINE
     Dosage: 21 MILLIGRAM, QD
     Route: 048
  50. TRICOR [Concomitant]
     Active Substance: FENOFIBRATE
     Route: 048
  51. WELLBUTRIN [Concomitant]
     Active Substance: BUPROPION HYDROCHLORIDE
     Dosage: 50 MILLIGRAM, QD
     Route: 048
  52. MINIPRESS [Concomitant]
     Active Substance: PRAZOSIN HYDROCHLORIDE
     Dosage: 1 MILLIGRAM, QD
     Route: 048
  53. PERCOCET [Concomitant]
     Active Substance: ACETAMINOPHEN\OXYCODONE HYDROCHLORIDE
     Dosage: 332.5 MILLIGRAM, BID (1 TABLET)
     Route: 048
  54. LYRICA [Concomitant]
     Active Substance: PREGABALIN
     Dosage: 150 MILLIGRAM, BID
     Route: 048
  55. ROCEPHIN [Concomitant]
     Active Substance: CEFTRIAXONE SODIUM
     Dosage: 1000 MILLIGRAM, QD (Q24H)
     Route: 040
  56. SODIUM CHLORIDE [Concomitant]
     Active Substance: SODIUM CHLORIDE
     Route: 065
  57. HEPARIN SODIUM [Concomitant]
     Active Substance: HEPARIN SODIUM
     Dosage: 1000 UNIT, Q8H
     Route: 058
  58. PULMICORT TURBUHALER [Concomitant]
     Active Substance: BUDESONIDE
     Dosage: 0.5 MILLIGRAM, BID
     Route: 065
  59. SINGULAIR [Concomitant]
     Active Substance: MONTELUKAST SODIUM
     Dosage: 10 MILLIGRAM, QD
     Route: 048
  60. TYLENOL [Concomitant]
     Active Substance: ACETAMINOPHEN
     Dosage: 650 MILLIGRAM, Q6H
     Route: 048
  61. MYLANTA [Concomitant]
     Active Substance: ALUMINUM HYDROXIDE\DIMETHICONE\MAGNESIUM HYDROXIDE
     Dosage: 30 MILLILITER, Q6H
     Route: 048
  62. DUONEB [Concomitant]
     Active Substance: ALBUTEROL SULFATE\IPRATROPIUM BROMIDE
     Dosage: 3 MILLILITER, Q6H (2.5-0.5 MG/3 ML SOLN)
     Route: 065
  63. TRANDATE [Concomitant]
     Active Substance: LABETALOL HYDROCHLORIDE
     Dosage: 10 MILLIGRAM, Q6H
     Route: 040
  64. MAGNESIUM SULFATE [Concomitant]
     Active Substance: MAGNESIUM SULFATE
     Route: 040
  65. MELATONIN [Concomitant]
     Active Substance: MELATONIN
     Route: 048
  66. Effer k 20 meq [Concomitant]
     Route: 048
  67. POTASSIUM CHLORIDE [Concomitant]
     Active Substance: POTASSIUM CHLORIDE
     Route: 040
  68. POTASSIUM PHOSPHATE [Concomitant]
     Active Substance: POTASSIUM PHOSPHATE
     Route: 040
  69. SENOKOT-S [Concomitant]
     Active Substance: DOCUSATE SODIUM\SENNOSIDES
     Dosage: UNK UNK, BID
     Route: 048
  70. NEUTRA-PHOS [Concomitant]
     Active Substance: POTASSIUM PHOSPHATE, DIBASIC\POTASSIUM PHOSPHATE, MONOBASIC\SODIUM PHOSPHATE, DIBASIC\SODIUM PHOSPHA
     Route: 048
  71. STERILE WATER [Concomitant]
     Active Substance: WATER
     Route: 040
  72. CALCIUM [Concomitant]
     Active Substance: CALCIUM
     Route: 065
  73. VITAMIN D [Concomitant]
     Active Substance: VITAMIN D NOS
     Route: 065
  74. POTASSIUM [Concomitant]
     Active Substance: POTASSIUM
     Route: 065
  75. MEDROXYPROGESTERONE ACETATE [Concomitant]
     Active Substance: MEDROXYPROGESTERONE ACETATE
     Route: 048
  76. MELOXICAM [Concomitant]
     Active Substance: MELOXICAM
     Route: 048
  77. TIZANIDINE [Concomitant]
     Active Substance: TIZANIDINE
     Route: 065
  78. MUPIROCIN [Concomitant]
     Active Substance: MUPIROCIN
     Route: 061
  79. CYCLIZINE [Concomitant]
     Active Substance: CYCLIZINE
     Route: 065
  80. METFORMIN HYDROCHLORIDE [Concomitant]
     Active Substance: METFORMIN HYDROCHLORIDE
     Dosage: 500 MILLIGRAM, BID
     Route: 048
  81. DULOXETINE HYDROCHLORIDE [Concomitant]
     Active Substance: DULOXETINE HYDROCHLORIDE
     Route: 048

REACTIONS (63)
  - Deafness neurosensory [Unknown]
  - Endocrine ophthalmopathy [Not Recovered/Not Resolved]
  - Graves^ disease [Not Recovered/Not Resolved]
  - Pneumonia [Unknown]
  - Type 2 diabetes mellitus [Unknown]
  - Pericardial effusion [Unknown]
  - Diabetes mellitus [Unknown]
  - COVID-19 [Unknown]
  - Emotional distress [Not Recovered/Not Resolved]
  - Anxiety [Not Recovered/Not Resolved]
  - Vertigo [Unknown]
  - Fall [Unknown]
  - Oscillopsia [Unknown]
  - Nystagmus [Unknown]
  - Essential hypertension [Unknown]
  - Thyroid stimulating immunoglobulin increased [Unknown]
  - Red blood cell count increased [Unknown]
  - Haemoglobin increased [Unknown]
  - Haematocrit increased [Unknown]
  - Blood pressure increased [Unknown]
  - Swelling [Unknown]
  - Glycosylated haemoglobin increased [Unknown]
  - Blood glucose increased [Unknown]
  - Glomerular filtration rate decreased [Unknown]
  - High density lipoprotein decreased [Unknown]
  - Very low density lipoprotein increased [Unknown]
  - Blood triglycerides increased [Unknown]
  - Blood thyroid stimulating hormone increased [Unknown]
  - Alpha 1 globulin increased [Unknown]
  - Fatigue [Unknown]
  - Stress [Unknown]
  - Vocal cord polyp [Unknown]
  - Blood potassium decreased [Unknown]
  - Carbon dioxide increased [Unknown]
  - Blood zinc increased [Unknown]
  - Menopausal disorder [Unknown]
  - Oesophageal spasm [Unknown]
  - Breast mass [Unknown]
  - Road traffic accident [Unknown]
  - Cough [Unknown]
  - Dyspnoea [Recovered/Resolved]
  - Blood magnesium increased [Unknown]
  - Alopecia [Unknown]
  - Blood pressure decreased [Unknown]
  - Hepatic steatosis [Unknown]
  - White blood cell count increased [Unknown]
  - High density lipoprotein decreased [Unknown]
  - Thyroxine free increased [Unknown]
  - High density lipoprotein decreased [Unknown]
  - Blood urea decreased [Unknown]
  - Blood urea nitrogen/creatinine ratio decreased [Unknown]
  - Palpitations [Unknown]
  - Osteoporosis [Unknown]
  - Malaise [Unknown]
  - Hypovitaminosis [Unknown]
  - Menopausal symptoms [Unknown]
  - Ear pain [Unknown]
  - Dizziness [Unknown]
  - Dysphonia [Unknown]
  - Dysphagia [Unknown]
  - Dry mouth [Unknown]
  - Candida infection [Unknown]
  - Abdominal pain [Unknown]

NARRATIVE: CASE EVENT DATE: 20190321
